FAERS Safety Report 23809616 (Version 1)
Quarter: 2024Q2

REPORT INFORMATION
  Report Type: Spontaneous
  Country: US (occurrence: US)
  Receive Date: 20240502
  Receipt Date: 20240502
  Transmission Date: 20240716
  Serious: No
  Sender: FDA-Public Use
  Company Number: US-UCBSA-2023023571

PATIENT
  Age: 32 Year
  Sex: Female
  Weight: 128.3 kg

DRUGS (9)
  1. CIMZIA [Suspect]
     Active Substance: CERTOLIZUMAB PEGOL
     Indication: Psoriasis
     Dosage: 400 MILLIGRAM, EV 4 WEEKS
  2. CIMZIA [Suspect]
     Active Substance: CERTOLIZUMAB PEGOL
     Indication: Rheumatoid arthritis
  3. MOMETASONE FUROATE [Concomitant]
     Active Substance: MOMETASONE FUROATE
     Indication: Product used for unknown indication
     Dosage: UNK
  4. VITAMIN D PLUS [Concomitant]
     Indication: Product used for unknown indication
     Dosage: 10 MICROGRAM
  5. NABUMETONE [Concomitant]
     Active Substance: NABUMETONE
     Indication: Product used for unknown indication
     Dosage: 100 % POWDER
  6. MONTELUKAST SODIUM [Concomitant]
     Active Substance: MONTELUKAST SODIUM
     Indication: Product used for unknown indication
     Dosage: 10 MILLIGRAM
  7. FEXOFENADINE [Concomitant]
     Active Substance: FEXOFENADINE HYDROCHLORIDE
     Indication: Product used for unknown indication
     Dosage: PSE ER
  8. SERTRALINE HYDROCHLORIDE [Concomitant]
     Active Substance: SERTRALINE HYDROCHLORIDE
     Indication: Product used for unknown indication
     Dosage: 100% POWDER
  9. AUROVELA 1.5/30 [Concomitant]
     Active Substance: ETHINYL ESTRADIOL\NORETHINDRONE ACETATE
     Indication: Product used for unknown indication
     Dosage: 1.5-0.03 MG

REACTIONS (1)
  - Product dispensing error [Unknown]

NARRATIVE: CASE EVENT DATE: 20230504
